FAERS Safety Report 12011068 (Version 1)
Quarter: 2016Q1

REPORT INFORMATION
  Report Type: Report from Study
  Country: US (occurrence: US)
  Receive Date: 20160205
  Receipt Date: 20160205
  Transmission Date: 20160526
  Serious: No
  Sender: FDA-Public Use
  Company Number: PHEH2016US002681

PATIENT
  Age: 82 Year
  Sex: Female

DRUGS (1)
  1. TOBI PODHALER [Suspect]
     Active Substance: TOBRAMYCIN
     Indication: PRODUCT USED FOR UNKNOWN INDICATION
     Dosage: 112 MG, Q12H
     Route: 055
     Dates: start: 20160105

REACTIONS (3)
  - Productive cough [Unknown]
  - Sputum discoloured [Unknown]
  - Haemoptysis [Recovering/Resolving]

NARRATIVE: CASE EVENT DATE: 20160129
